FAERS Safety Report 6881088-5 (Version None)
Quarter: 2010Q3

REPORT INFORMATION
  Report Type: 
  Country: None (occurrence: None)
  Receive Date: 20100727
  Receipt Date: 20100715
  Transmission Date: 20110219
  Serious: Yes (Other)
  Sender: FDA-Public Use
  Company Number: BE-BIOGENIDEC-2010BI024358

PATIENT
  Age: 36 Year
  Sex: Female

DRUGS (3)
  1. TYSABRI [Suspect]
     Indication: RELAPSING-REMITTING MULTIPLE SCLEROSIS
     Route: 042
     Dates: start: 20100201
  2. SIPRALEXA [Concomitant]
     Dates: start: 20070101
  3. TRAZOLAN [Concomitant]
     Dates: start: 20050101

REACTIONS (1)
  - MENINGIOMA [None]
